FAERS Safety Report 7136038-3 (Version None)
Quarter: 2010Q4

REPORT INFORMATION
  Report Type: 
  Country: None (occurrence: None)
  Receive Date: 20101204
  Receipt Date: 20090528
  Transmission Date: 20110411
  Serious: Yes (Other)
  Sender: FDA-Public Use
  Company Number: US-BAYER-201042030NA

PATIENT

DRUGS (1)
  1. TRASYLOL [Suspect]
     Route: 042
     Dates: start: 20080601, end: 20080601

REACTIONS (10)
  - ANXIETY [None]
  - EMOTIONAL DISORDER [None]
  - FEAR [None]
  - MULTI-ORGAN FAILURE [None]
  - MULTIPLE INJURIES [None]
  - PAIN [None]
  - RENAL DISORDER [None]
  - RENAL FAILURE [None]
  - RENAL IMPAIRMENT [None]
  - STRESS [None]
